FAERS Safety Report 7350655-7 (Version None)
Quarter: 2011Q1

REPORT INFORMATION
  Report Type: 
  Country: None (occurrence: None)
  Receive Date: 20110314
  Receipt Date: 20100129
  Transmission Date: 20110831
  Serious: No
  Sender: FDA-Public Use
  Company Number: US-BAYER-201012931NA

PATIENT
  Sex: Female

DRUGS (2)
  1. MIRENA [Suspect]
     Indication: CONTRACEPTION
     Dosage: 20 ?G/D, CONT
     Route: 015
     Dates: start: 20091118, end: 20091118
  2. MIRENA [Suspect]
     Dosage: 20 ?G/D, CONT
     Route: 015
     Dates: start: 20091118, end: 20091118

REACTIONS (4)
  - VULVOVAGINAL DISCOMFORT [None]
  - PRODUCT EXPIRATION DATE ISSUE [None]
  - DEVICE EXPULSION [None]
  - UTERINE SPASM [None]
